FAERS Safety Report 12343373 (Version 3)
Quarter: 2016Q3

REPORT INFORMATION
  Report Type: Spontaneous
  Country: US (occurrence: US)
  Receive Date: 20160506
  Receipt Date: 20160901
  Transmission Date: 20161109
  Serious: Yes (Other)
  Sender: FDA-Public Use
  Company Number: US-RELYPSA-RLY2016000234

PATIENT
  Sex: Female

DRUGS (9)
  1. PLAVIX [Concomitant]
     Active Substance: CLOPIDOGREL BISULFATE
  2. DIOVAN [Concomitant]
     Active Substance: VALSARTAN
  3. VELTASSA [Suspect]
     Active Substance: PATIROMER
     Indication: HYPERKALAEMIA
     Dosage: 8.4 G, QD
     Dates: start: 201603, end: 20160412
  4. CARTEOLOL [Concomitant]
     Active Substance: CARTEOLOL
  5. TYLENOL [Concomitant]
     Active Substance: ACETAMINOPHEN
     Dosage: UNK, PRN
  6. FUROSEMIDE. [Concomitant]
     Active Substance: FUROSEMIDE
     Dosage: UNK, PRN
  7. INSULIN [Concomitant]
     Active Substance: INSULIN NOS
     Dosage: 25 U, BID
  8. LEVOTHROID [Concomitant]
     Active Substance: LEVOTHYROXINE SODIUM
  9. NITROGLYCERINE [Concomitant]
     Active Substance: NITROGLYCERIN
     Dosage: UNK, PRN

REACTIONS (3)
  - Constipation [Recovered/Resolved]
  - Urticaria [Recovered/Resolved]
  - Eye swelling [Not Recovered/Not Resolved]

NARRATIVE: CASE EVENT DATE: 2016
